FAERS Safety Report 7242980-5 (Version None)
Quarter: 2011Q1

REPORT INFORMATION
  Report Type: 
  Country: None (occurrence: None)
  Receive Date: 20110125
  Receipt Date: 20110112
  Transmission Date: 20110831
  Serious: Yes (Other)
  Sender: FDA-Public Use
  Company Number: JP-PFIZER INC-2010179260

PATIENT
  Age: 78 Year
  Sex: Female

DRUGS (6)
  1. ALFAROL [Concomitant]
  2. NAUZELIN [Concomitant]
  3. MEVALOTIN [Concomitant]
  4. HALCION [Suspect]
     Indication: INSOMNIA
     Dosage: 0.25 MG, 1X/DAY
     Route: 048
  5. TAGAMET [Concomitant]
  6. SELBEX [Concomitant]

REACTIONS (1)
  - COGNITIVE DISORDER [None]
